FAERS Safety Report 25184090 (Version 1)
Quarter: 2025Q2

REPORT INFORMATION
  Report Type: Spontaneous
  Country: US (occurrence: US)
  Receive Date: 20250410
  Receipt Date: 20250410
  Transmission Date: 20250716
  Serious: Yes (Other)
  Sender: COSETTE PHARMACEUTICALS
  Company Number: US-COSETTE-CP2025US000360

PATIENT

DRUGS (2)
  1. AMBIEN [Suspect]
     Active Substance: ZOLPIDEM TARTRATE
     Indication: Product used for unknown indication
     Route: 065
  2. BELSOMRA [Concomitant]
     Active Substance: SUVOREXANT
     Indication: Product used for unknown indication
     Route: 065

REACTIONS (2)
  - Drug dependence [Unknown]
  - Product use issue [Unknown]

NARRATIVE: CASE EVENT DATE: 20250318
